FAERS Safety Report 6288716-6 (Version None)
Quarter: 2009Q3

REPORT INFORMATION
  Report Type: 
  Country: None (occurrence: None)
  Receive Date: 20090729
  Receipt Date: 20090717
  Transmission Date: 20100115
  Serious: Yes (Hospitalization, Other)
  Sender: FDA-Public Use
  Company Number: PHEH2009US07713

PATIENT
  Age: 46 Year
  Sex: Male

DRUGS (12)
  1. TASIGNA [Suspect]
     Indication: ACUTE LYMPHOCYTIC LEUKAEMIA
     Dosage: 200 MG, BID
  2. CEFEPIME [Concomitant]
  3. BACTRIM [Concomitant]
  4. LEVAQUIN [Concomitant]
  5. CASPOFUNGIN [Concomitant]
  6. VANCOMYCIN [Concomitant]
  7. ACYCLOVIR [Concomitant]
  8. SIROLIMUS [Concomitant]
  9. LOVENOX [Concomitant]
  10. VERSED [Concomitant]
  11. FENTANYL [Concomitant]
  12. PROPOFOL [Concomitant]

REACTIONS (3)
  - HEPATIC FAILURE [None]
  - PNEUMONIA [None]
  - SEPTIC SHOCK [None]
